FAERS Safety Report 9394270 (Version 2)
Quarter: 2013Q3

REPORT INFORMATION
  Report Type: Spontaneous
  Country: US (occurrence: US)
  Receive Date: 20130711
  Receipt Date: 20130807
  Transmission Date: 20140515
  Serious: Yes (Hospitalization, Other)
  Sender: FDA-Public Use
  Company Number: US-AMGEN-USASP2013047996

PATIENT
  Age: 71 Year
  Sex: Male
  Weight: 72.56 kg

DRUGS (2)
  1. NPLATE [Suspect]
     Indication: IMMUNE THROMBOCYTOPENIC PURPURA
     Dosage: 80 MUG, QWK
     Route: 058
     Dates: start: 20130516
  2. IMMUNOGLOBULINS [Concomitant]
     Indication: IMMUNE THROMBOCYTOPENIC PURPURA
     Dosage: 75 MG, QD
     Route: 042
     Dates: start: 20130619, end: 20130620

REACTIONS (2)
  - Pulmonary embolism [Recovering/Resolving]
  - Platelet count abnormal [Unknown]
